FAERS Safety Report 7482770-1 (Version None)
Quarter: 2011Q2

REPORT INFORMATION
  Report Type: 
  Country: None (occurrence: None)
  Receive Date: 20110516
  Receipt Date: 20110106
  Transmission Date: 20111010
  Serious: No
  Sender: FDA-Public Use
  Company Number: US-BAYER-2011-029803

PATIENT
  Sex: Female
  Weight: 63 kg

DRUGS (3)
  1. ALEVE (CAPLET) [Suspect]
     Indication: ARTHRITIS
     Route: 048
  2. ANTIHYPERTENSIVES [Concomitant]
  3. ASPIRIN [Concomitant]

REACTIONS (1)
  - ABDOMINAL DISTENSION [None]
